FAERS Safety Report 16822868 (Version 1)
Quarter: 2019Q4

REPORT INFORMATION
  Report Type: Spontaneous
  Country: US (occurrence: US)
  Receive Date: 20190918
  Receipt Date: 20190918
  Transmission Date: 20200122
  Serious: Yes (Hospitalization)
  Sender: FDA-Public Use
  Company Number: None

PATIENT
  Age: 87 Year
  Sex: Female

DRUGS (9)
  1. QUETIAPINE TAB 25 MG [Concomitant]
  2. FORTEO [Suspect]
     Active Substance: TERIPARATIDE
     Indication: PRODUCT USED FOR UNKNOWN INDICATION
     Route: 058
     Dates: start: 20180123, end: 20190917
  3. METOPROLOL TAR TAB 50 MG [Concomitant]
  4. DIGOXIN TAB 0.125 MG [Concomitant]
  5. POT CL MICRO TAB 10 MEQ CR [Concomitant]
  6. MEMANTINE TAB HCL 10 MG [Concomitant]
  7. MYRBETRIQ TAB 25 MG [Concomitant]
  8. SMZ/TMP DS TAB 800-160 [Concomitant]
     Active Substance: SULFAMETHOXAZOLE\TRIMETHOPRIM
  9. FLUOXETINE TAB 10 MG [Concomitant]

REACTIONS (1)
  - Fall [None]
